FAERS Safety Report 6180148-4 (Version None)
Quarter: 2009Q2

REPORT INFORMATION
  Report Type: 
  Country: None (occurrence: None)
  Receive Date: 20090505
  Receipt Date: 20090424
  Transmission Date: 20091009
  Serious: Yes (Other)
  Sender: FDA-Public Use
  Company Number: US-BAYER-200911304BCC

PATIENT
  Age: 74 Year
  Sex: Male
  Weight: 91 kg

DRUGS (4)
  1. PHILLIPS' MILK OF MAGNESIA CHERRY [Suspect]
     Indication: CONSTIPATION
     Dosage: TOTAL DAILY DOSE: 30 ML
     Route: 048
     Dates: start: 20090423
  2. FLOMAX [Concomitant]
  3. HUMALOG [Concomitant]
  4. LEVEMIR [Concomitant]
     Dosage: 32 UNITS IN THE MORNING

REACTIONS (1)
  - BLOOD GLUCOSE INCREASED [None]
